FAERS Safety Report 19769950 (Version 1)
Quarter: 2021Q3

REPORT INFORMATION
  Report Type: Spontaneous
  Country: US (occurrence: US)
  Receive Date: 20210827
  Receipt Date: 20210827
  Transmission Date: 20211014
  Serious: No
  Sender: FDA-Public Use
  Company Number: None

PATIENT
  Sex: Male

DRUGS (1)
  1. RYDAPT [Suspect]
     Active Substance: MIDOSTAURIN
     Indication: HAEMATOPOIETIC NEOPLASM
     Route: 048
     Dates: start: 20200203

REACTIONS (2)
  - Therapy non-responder [None]
  - Therapy cessation [None]
